FAERS Safety Report 4705407-0 (Version None)
Quarter: 2005Q3

REPORT INFORMATION
  Report Type: 
  Country: None (occurrence: None)
  Receive Date: 20050701
  Receipt Date: 20040116
  Transmission Date: 20060218
  Serious: Yes (Hospitalization)
  Sender: FDA-Public Use
  Company Number: FR-GLAXOSMITHKLINE-B0320028A

PATIENT
  Age: 56 Year
  Sex: Female

DRUGS (10)
  1. AUGMENTIN '125' [Suspect]
     Indication: SUPERINFECTION LUNG
     Dosage: 1G THREE TIMES PER DAY
     Route: 042
     Dates: start: 20031202
  2. FRAXIPARINE [Suspect]
     Dosage: .3MG PER DAY
     Route: 058
     Dates: start: 20031202
  3. CIFLOX [Suspect]
     Indication: SUPERINFECTION LUNG
     Dosage: 200MG TWICE PER DAY
     Route: 048
     Dates: start: 20031202
  4. VORICONAZOLE [Suspect]
     Indication: SUPERINFECTION LUNG
     Dosage: 200MG TWICE PER DAY
     Route: 048
     Dates: start: 20031206
  5. SOTALOL HCL [Suspect]
     Dosage: 80MG TWICE PER DAY
     Route: 048
     Dates: start: 20001218
  6. SPORANOX [Concomitant]
     Indication: SUPERINFECTION LUNG
     Dosage: 100MG FOUR TIMES PER DAY
     Route: 048
     Dates: start: 20031202, end: 20031205
  7. LEXOMIL [Concomitant]
     Route: 065
  8. VIOXX [Concomitant]
     Route: 065
  9. FOSAMAX [Concomitant]
     Route: 065
  10. CLONAZEPAM [Concomitant]
     Route: 065

REACTIONS (1)
  - HYPERKALAEMIA [None]
